FAERS Safety Report 5450650-9 (Version None)
Quarter: 2007Q3

REPORT INFORMATION
  Report Type: 
  Country: None (occurrence: None)
  Receive Date: 20070910
  Receipt Date: 20070828
  Transmission Date: 20080115
  Serious: Yes (Death, Life-Threatening, Hospitalization)
  Sender: FDA-Public Use
  Company Number: 40244

PATIENT
  Age: 82 Year
  Sex: Male

DRUGS (1)
  1. LEUCOVORIN CALCIUM [Suspect]
     Indication: COLORECTAL CANCER METASTATIC
     Dosage: 800MG/IV/EVERY 2 WEEKS
     Dates: start: 20070709

REACTIONS (7)
  - ANAEMIA [None]
  - ASTHENIA [None]
  - DEHYDRATION [None]
  - NEUTROPENIC SEPSIS [None]
  - PARANEOPLASTIC SYNDROME [None]
  - SEPSIS [None]
  - STOMATITIS [None]
